FAERS Safety Report 23628324 (Version 1)
Quarter: 2024Q1

REPORT INFORMATION
  Report Type: Spontaneous
  Country: US (occurrence: US)
  Receive Date: 20240313
  Receipt Date: 20240313
  Transmission Date: 20240410
  Serious: Yes (Other)
  Sender: FDA-Public Use
  Company Number: US-002147023-NVSC2024US050100

PATIENT
  Sex: Male
  Weight: 86.64 kg

DRUGS (1)
  1. PLUVICTO [Suspect]
     Active Substance: LUTETIUM LU-177 VIPIVOTIDE TETRAXETAN
     Indication: Prostate cancer
     Dosage: UNK (EVERY 6 WEEKS)
     Route: 042
     Dates: start: 20230814

REACTIONS (1)
  - Osteonecrosis of jaw [Unknown]
